FAERS Safety Report 23179631 (Version 1)
Quarter: 2023Q4

REPORT INFORMATION
  Report Type: Spontaneous
  Country: CN (occurrence: CN)
  Receive Date: 20231114
  Receipt Date: 20231114
  Transmission Date: 20240110
  Serious: Yes (Hospitalization)
  Sender: FDA-Public Use
  Company Number: CN-ABBVIE-5488860

PATIENT
  Age: 54 Year
  Sex: Female
  Weight: 65 kg

DRUGS (3)
  1. VENETOCLAX [Suspect]
     Active Substance: VENETOCLAX
     Indication: Neoplasm prophylaxis
     Route: 048
     Dates: start: 20230927, end: 20231003
  2. AZACITIDINE [Suspect]
     Active Substance: AZACITIDINE
     Indication: Neoplasm prophylaxis
     Dates: start: 20230927, end: 20231003
  3. CYTARABINE [Suspect]
     Active Substance: CYTARABINE
     Indication: Neoplasm prophylaxis
     Dosage: 0.034 GRAM
     Dates: start: 20230927, end: 20231003

REACTIONS (1)
  - Myelosuppression [Recovering/Resolving]

NARRATIVE: CASE EVENT DATE: 20230928
